FAERS Safety Report 6317525-4 (Version None)
Quarter: 2009Q3

REPORT INFORMATION
  Report Type: 
  Country: None (occurrence: None)
  Receive Date: 20090821
  Receipt Date: 20090729
  Transmission Date: 20100115
  Serious: No
  Sender: FDA-Public Use
  Company Number: GB-ROCHE-648380

PATIENT
  Sex: Male

DRUGS (1)
  1. TAMIFLU [Suspect]
     Indication: DRUG USE FOR UNKNOWN INDICATION
     Dosage: TOOK 6 TABLETS BETWEEN 9PM AND 11AM FOLLOWING DAY
     Route: 065
     Dates: start: 20090728

REACTIONS (3)
  - CONFUSIONAL STATE [None]
  - NO ADVERSE EVENT [None]
  - OVERDOSE [None]
